FAERS Safety Report 12625342 (Version 1)
Quarter: 2016Q3

REPORT INFORMATION
  Report Type: Spontaneous
  Country: TR (occurrence: TR)
  Receive Date: 20160805
  Receipt Date: 20160805
  Transmission Date: 20161109
  Serious: Yes (Hospitalization)
  Sender: FDA-Public Use
  Company Number: TR-IPCA LABORATORIES LIMITED-IPC201607-000659

PATIENT
  Age: 74 Year
  Sex: Female

DRUGS (5)
  1. LEVODOPA AND CARBIDOPA [Concomitant]
  2. QUETIAPINE. [Suspect]
     Active Substance: QUETIAPINE
  3. VALSARTAN. [Suspect]
     Active Substance: VALSARTAN
  4. LITHIUM. [Suspect]
     Active Substance: LITHIUM
  5. HYDROCHLOROTHIAZIDE. [Suspect]
     Active Substance: HYDROCHLOROTHIAZIDE

REACTIONS (2)
  - Toxicity to various agents [Recovered/Resolved]
  - Drug interaction [Unknown]
